FAERS Safety Report 22642222 (Version 2)
Quarter: 2023Q2

REPORT INFORMATION
  Report Type: Spontaneous
  Country: BE (occurrence: BE)
  Receive Date: 20230626
  Receipt Date: 20230630
  Transmission Date: 20230721
  Serious: Yes (Hospitalization)
  Sender: FDA-Public Use
  Company Number: None

PATIENT
  Age: 64 Year
  Sex: Female

DRUGS (1)
  1. DICLOFENAC [Suspect]
     Active Substance: DICLOFENAC
     Indication: Product used for unknown indication
     Route: 065

REACTIONS (3)
  - Respiratory distress [Recovered/Resolved]
  - Rash [Recovered/Resolved]
  - Hypersensitivity [Recovered/Resolved]
